FAERS Safety Report 9150015 (Version 2)
Quarter: 2013Q1

REPORT INFORMATION
  Report Type: Spontaneous
  Country: KR (occurrence: KR)
  Receive Date: 20130308
  Receipt Date: 20130315
  Transmission Date: 20140127
  Serious: Yes (Other)
  Sender: FDA-Public Use
  Company Number: KR-PFIZER INC-2013072416

PATIENT
  Age: 58 Year
  Sex: Male

DRUGS (1)
  1. SILDENAFIL CITRATE [Suspect]
     Dosage: UNK
     Route: 048

REACTIONS (6)
  - Extraocular muscle disorder [Unknown]
  - Visual impairment [Unknown]
  - Diplopia [Unknown]
  - Strabismus [Unknown]
  - Extraocular muscle disorder [Unknown]
  - Conjunctival hyperaemia [Recovering/Resolving]
